FAERS Safety Report 14378612 (Version 1)
Quarter: 2018Q1

REPORT INFORMATION
  Report Type: Spontaneous
  Country: US (occurrence: US)
  Receive Date: 20180112
  Receipt Date: 20180112
  Transmission Date: 20180509
  Serious: Yes (Hospitalization)
  Sender: FDA-Public Use
  Company Number: US-009507513-1801USA002180

PATIENT
  Age: 87 Year
  Sex: Male

DRUGS (16)
  1. ONDANSETRON [Concomitant]
     Active Substance: ONDANSETRON
  2. FUROSEMIDE. [Concomitant]
     Active Substance: FUROSEMIDE
  3. ERTAPENEM SODIUM [Suspect]
     Active Substance: ERTAPENEM SODIUM
     Route: 042
  4. GABAPENTIN. [Concomitant]
     Active Substance: GABAPENTIN
  5. MOXIFLEX [Suspect]
     Active Substance: MOXIFLOXACIN HYDROCHLORIDE
  6. OXYCODONE [Concomitant]
     Active Substance: OXYCODONE
  7. ACETAMINOPHEN. [Concomitant]
     Active Substance: ACETAMINOPHEN
  8. DIGOXIN. [Concomitant]
     Active Substance: DIGOXIN
  9. DOCUSATE SODIUM. [Concomitant]
     Active Substance: DOCUSATE SODIUM
  10. WARFARIN [Concomitant]
     Active Substance: WARFARIN
  11. TAMSULOSIN HYDROCHLORIDE. [Concomitant]
     Active Substance: TAMSULOSIN HYDROCHLORIDE
  12. SENNA [Concomitant]
     Active Substance: SENNA LEAF\SENNOSIDES\SENNOSIDES A AND B
  13. MELATONIN [Concomitant]
     Active Substance: MELATONIN
  14. INSULIN [Concomitant]
     Active Substance: INSULIN NOS
  15. METOPROLOL. [Concomitant]
     Active Substance: METOPROLOL
  16. CHOLECALCIFEROL [Concomitant]
     Active Substance: CHOLECALCIFEROL

REACTIONS (1)
  - Mental status changes [Recovered/Resolved]
